FAERS Safety Report 17300294 (Version 1)
Quarter: 2020Q1

REPORT INFORMATION
  Report Type: Spontaneous
  Country: US (occurrence: US)
  Receive Date: 20200122
  Receipt Date: 20200122
  Transmission Date: 20200409
  Serious: No
  Sender: FDA-Public Use
  Company Number: US-ALLERGAN-1901914US

PATIENT
  Age: 51 Year
  Sex: Female

DRUGS (3)
  1. RESTASIS [Suspect]
     Active Substance: CYCLOSPORINE
     Indication: DRY EYE
     Dosage: 2 GTT, TWICE A DAY AS NEEDED
     Route: 047
     Dates: start: 201812
  2. RESTASIS [Suspect]
     Active Substance: CYCLOSPORINE
     Indication: SEASONAL ALLERGY
  3. BEREV [Concomitant]
     Indication: SEASONAL ALLERGY
     Dosage: UNK, QD
     Route: 047

REACTIONS (4)
  - Product container issue [Unknown]
  - Incorrect dose administered by product [Unknown]
  - Off label use [Unknown]
  - Accidental exposure to product [Unknown]

NARRATIVE: CASE EVENT DATE: 201812
